FAERS Safety Report 8916919 (Version 1)
Quarter: 2012Q4

REPORT INFORMATION
  Report Type: 
  Country: FR (occurrence: FR)
  Receive Date: 20121120
  Receipt Date: 20121120
  Transmission Date: 20130627
  Serious: Yes (Hospitalization)
  Sender: FDA-Public Use
  Company Number: FR-ASTRAZENECA-2012SE86277

PATIENT
  Sex: Female

DRUGS (14)
  1. INEXIUM [Suspect]
     Route: 048
     Dates: end: 201209
  2. BELUSTINE [Suspect]
     Indication: OLIGODENDROGLIOMA
     Route: 048
     Dates: start: 20120725, end: 20120725
  3. VINCRISTINE [Suspect]
     Indication: OLIGODENDROGLIOMA
     Route: 042
     Dates: start: 20120802, end: 20120802
  4. VINCRISTINE [Suspect]
     Indication: OLIGODENDROGLIOMA
     Route: 042
     Dates: start: 20120823, end: 20120823
  5. NATULAN [Suspect]
     Route: 048
     Dates: start: 20120802, end: 20120816
  6. DEPAKINE CHRONO [Suspect]
     Indication: EPILEPSY
     Route: 048
     Dates: end: 201209
  7. XANAX [Suspect]
     Route: 048
  8. EZETROL [Suspect]
     Route: 048
     Dates: end: 201209
  9. ENDOTELON [Suspect]
     Route: 048
     Dates: end: 201209
  10. MEDROL [Suspect]
     Route: 048
     Dates: end: 201209
  11. ZANIDIP [Suspect]
     Route: 048
     Dates: end: 201209
  12. MOXONIDINE [Suspect]
     Indication: HYPERTENSION
     Route: 048
     Dates: end: 201209
  13. TEMESTA [Suspect]
     Route: 048
     Dates: start: 201207, end: 201209
  14. DITROPAN [Suspect]
     Route: 048
     Dates: start: 20120903, end: 20120907

REACTIONS (5)
  - General physical condition abnormal [Unknown]
  - Fall [Unknown]
  - Mixed liver injury [Not Recovered/Not Resolved]
  - Urinary retention [Unknown]
  - Hyperparathyroidism [Unknown]
